FAERS Safety Report 11617450 (Version 2)
Quarter: 2016Q1

REPORT INFORMATION
  Report Type: Spontaneous
  Country: US (occurrence: US)
  Receive Date: 20151009
  Receipt Date: 20160329
  Transmission Date: 20160525
  Serious: Yes (Hospitalization, Other)
  Sender: FDA-Public Use
  Company Number: US-PFIZER INC-2015332279

PATIENT
  Age: 56 Year
  Sex: Female
  Weight: 136 kg

DRUGS (1)
  1. LIPITOR [Suspect]
     Active Substance: ATORVASTATIN CALCIUM
     Dosage: UNK

REACTIONS (3)
  - Dyspnoea [Unknown]
  - Hepatitis C [Unknown]
  - Coma [Unknown]

NARRATIVE: CASE EVENT DATE: 2015
